FAERS Safety Report 7967721-5 (Version None)
Quarter: 2011Q4

REPORT INFORMATION
  Report Type: 
  Country: None (occurrence: None)
  Receive Date: 20111209
  Receipt Date: 20111209
  Transmission Date: 20120403
  Serious: Yes (Other)
  Sender: FDA-Public Use
  Company Number: None

PATIENT
  Age: 72 Year
  Sex: Female
  Weight: 61.234 kg

DRUGS (2)
  1. SINGULAIR [Suspect]
     Indication: ASTHMA
     Dosage: ?
     Route: 048
     Dates: start: 20111013, end: 20111014
  2. SINGULAIR [Suspect]
     Indication: COUGH
     Dosage: ?
     Route: 048
     Dates: start: 20111013, end: 20111014

REACTIONS (4)
  - MIDDLE INSOMNIA [None]
  - MUSCLE SPASMS [None]
  - PARAESTHESIA [None]
  - MUSCLE TIGHTNESS [None]
